FAERS Safety Report 23428998 (Version 1)
Quarter: 2024Q1

REPORT INFORMATION
  Report Type: Spontaneous
  Country: US (occurrence: US)
  Receive Date: 20240122
  Receipt Date: 20240122
  Transmission Date: 20240410
  Serious: Yes (Hospitalization, Other)
  Sender: FDA-Public Use
  Company Number: US-AMGEN-USASP2024009471

PATIENT
  Age: 93 Year
  Sex: Female

DRUGS (5)
  1. SENSIPAR [Suspect]
     Active Substance: CINACALCET HYDROCHLORIDE
     Indication: Product used for unknown indication
     Dosage: UNK
     Route: 065
  2. NORVASC [Concomitant]
     Active Substance: AMLODIPINE BESYLATE
  3. ASPIRIN [Concomitant]
     Active Substance: ASPIRIN
  4. PLAVIX [Concomitant]
     Active Substance: CLOPIDOGREL BISULFATE
  5. EPINEPHRINE [Concomitant]
     Active Substance: EPINEPHRINE

REACTIONS (14)
  - Brain neoplasm [Recovered/Resolved]
  - Cataract [Unknown]
  - Meningioma [Recovered/Resolved]
  - Retinal artery occlusion [Unknown]
  - Lung neoplasm malignant [Recovered/Resolved]
  - Illness [Unknown]
  - Cerebrovascular accident [Unknown]
  - Muscle rupture [Unknown]
  - Oesophageal dilatation [Unknown]
  - Biopsy [Unknown]
  - Hypoaesthesia [Unknown]
  - Muscle disorder [Unknown]
  - Mobility decreased [Unknown]
  - Visual impairment [Unknown]
